FAERS Safety Report 4543244-0 (Version None)
Quarter: 2005Q1

REPORT INFORMATION
  Report Type: 
  Country: None (occurrence: None)
  Receive Date: 20050103
  Receipt Date: 20041214
  Transmission Date: 20050727
  Serious: Yes (Other)
  Sender: FDA-Public Use
  Company Number: DEWYE281114DEC04

PATIENT
  Sex: Female
  Weight: 80 kg

DRUGS (3)
  1. ENBREL [Suspect]
     Indication: ANKYLOSING SPONDYLITIS
     Route: 058
     Dates: start: 20040901, end: 20041119
  2. DEXIBUPROFEN [Concomitant]
     Dosage: 3 TO 4 TABLETS DAILY
     Route: 048
  3. THYROID TAB [Concomitant]
     Indication: HYPERTHYROIDISM

REACTIONS (4)
  - CONDITION AGGRAVATED [None]
  - DYSPHAGIA [None]
  - PHARYNGOLARYNGEAL PAIN [None]
  - THYROID NEOPLASM [None]
